FAERS Safety Report 6861957-2 (Version None)
Quarter: 2010Q3

REPORT INFORMATION
  Report Type: 
  Country: None (occurrence: None)
  Receive Date: 20100721
  Receipt Date: 20100713
  Transmission Date: 20110219
  Serious: Yes (Other)
  Sender: FDA-Public Use
  Company Number: CA-BAYER-201018787NA

PATIENT
  Age: 45 Year
  Sex: Female

DRUGS (1)
  1. MIRENA [Suspect]
     Indication: PRODUCT USED FOR UNKNOWN INDICATION
     Dosage: FREQUENCY: CONTINUOUS
     Route: 015
     Dates: start: 20100301

REACTIONS (12)
  - ACNE [None]
  - ANGINA PECTORIS [None]
  - DYSMENORRHOEA [None]
  - FATIGUE [None]
  - HEADACHE [None]
  - HYPOMENORRHOEA [None]
  - MIGRAINE WITH AURA [None]
  - NAUSEA [None]
  - PARAESTHESIA [None]
  - RASH MACULAR [None]
  - SEBORRHOEA [None]
  - SWELLING [None]
